FAERS Safety Report 15355059 (Version 6)
Quarter: 2020Q1

REPORT INFORMATION
  Report Type: Spontaneous
  Country: US (occurrence: US)
  Receive Date: 20180906
  Receipt Date: 20200227
  Transmission Date: 20200409
  Serious: Yes (Hospitalization, Other)
  Sender: FDA-Public Use
  Company Number: US-PFIZER INC-2018354083

PATIENT
  Age: 65 Year
  Sex: Female
  Weight: 79.83 kg

DRUGS (15)
  1. ELIQUIS [Concomitant]
     Active Substance: APIXABAN
     Dosage: 5 MG, 2X/DAY
  2. SINGULAIR [Concomitant]
     Active Substance: MONTELUKAST SODIUM
     Dosage: 10 MG, 1X/DAY, (TAKE 10 MG BY MOUTH NIGHTLY)
     Route: 048
  3. MS CONTIN [Concomitant]
     Active Substance: MORPHINE SULFATE
     Dosage: 30 MG, DAILY
     Route: 048
  4. PREMARIN [Suspect]
     Active Substance: ESTROGENS, CONJUGATED
     Indication: MENOPAUSAL SYMPTOMS
  5. CLEOCIN [CLINDAMYCIN HYDROCHLORIDE] [Concomitant]
     Indication: SKIN INFECTION
     Dosage: 300 MG, 4X/DAY, (TAKE 1 CAPSULE BY MOUTH EVERY 6 HOURS FOR 5 DAYS)
     Route: 048
  6. DESYREL [Concomitant]
     Active Substance: TRAZODONE HYDROCHLORIDE
     Dosage: 50 MG, DAILY, (TAKE 50MG MG BY MOUTH NIGHTLY)
  7. EFFEXOR XR [Concomitant]
     Active Substance: VENLAFAXINE HYDROCHLORIDE
     Dosage: 225 MG, DAILY
     Route: 048
  8. PREMARIN [Suspect]
     Active Substance: ESTROGENS, CONJUGATED
     Indication: MENOPAUSAL SYMPTOMS
  9. ELIQUIS [Concomitant]
     Active Substance: APIXABAN
     Dosage: 10 MG, 2X/DAY (7 DAYS)
  10. FERROUS SULFATE ANHYDROUS. [Concomitant]
     Active Substance: FERROUS SULFATE ANHYDROUS
     Dosage: 325 MG, 2X/DAY
     Route: 048
  11. ENBREL [Concomitant]
     Active Substance: ETANERCEPT
     Dosage: UNK, (INJECT UNDER THE SKIN)
     Route: 058
  12. PREMARIN [Suspect]
     Active Substance: ESTROGENS, CONJUGATED
     Indication: HOT FLUSH
     Dosage: 0.625 MG, 1X/DAY (MORNING)
     Route: 048
  13. PREMARIN [Suspect]
     Active Substance: ESTROGENS, CONJUGATED
     Indication: INSOMNIA
     Dosage: UNK
  14. CALCIUM CITRATE/MAGNESIUM [Concomitant]
     Dosage: UNK
     Route: 048
  15. PROTONIX [Concomitant]
     Active Substance: PANTOPRAZOLE SODIUM
     Dosage: 40 MG, 1X/DAY, (TAKE 40 MG BY MOUTH EVERY MORNING (BEFORE  BREAKFAST))

REACTIONS (13)
  - Thrombosis [Recovering/Resolving]
  - Urinary tract infection [Unknown]
  - Hypotension [Recovered/Resolved]
  - Anaemia [Unknown]
  - Iron deficiency [Unknown]
  - Erythema [Unknown]
  - Systemic lupus erythematosus [Recovering/Resolving]
  - Crying [Unknown]
  - Pre-existing condition improved [Unknown]
  - Spinal fracture [Unknown]
  - Cellulitis [Recovered/Resolved]
  - Scar [Unknown]
  - Therapeutic response unexpected [Unknown]

NARRATIVE: CASE EVENT DATE: 201912
